FAERS Safety Report 20014216 (Version 1)
Quarter: 2021Q4

REPORT INFORMATION
  Report Type: Spontaneous
  Country: US (occurrence: US)
  Receive Date: 20211029
  Receipt Date: 20211029
  Transmission Date: 20220304
  Serious: Yes (Death)
  Sender: FDA-Public Use
  Company Number: US-JACOBUS PHARMACEUTICAL COMPANY, INC.-2121182

PATIENT
  Age: 78 Year
  Sex: Female
  Weight: 36.36 kg

DRUGS (4)
  1. RUZURGI [Suspect]
     Active Substance: AMIFAMPRIDINE
     Indication: Myasthenic syndrome
     Route: 048
     Dates: start: 20190819
  2. MESTINON [Concomitant]
     Active Substance: PYRIDOSTIGMINE BROMIDE
  3. TYLENOL [Concomitant]
     Active Substance: ACETAMINOPHEN
  4. LORAZEPAM [Concomitant]
     Active Substance: LORAZEPAM

REACTIONS (4)
  - Systemic scleroderma [Fatal]
  - Decreased appetite [Not Recovered/Not Resolved]
  - Fall [Recovered/Resolved with Sequelae]
  - Skin laceration [Recovered/Resolved with Sequelae]
